FAERS Safety Report 6527102-8 (Version None)
Quarter: 2009Q4

REPORT INFORMATION
  Report Type: 
  Country: None (occurrence: None)
  Receive Date: 20091229
  Receipt Date: 20091214
  Transmission Date: 20100525
  Serious: Yes (Life-Threatening, Hospitalization)
  Sender: FDA-Public Use
  Company Number: 003381

PATIENT
  Sex: Female

DRUGS (13)
  1. KEPPRA [Suspect]
     Indication: EPILEPSY
     Dosage: 250 MG BID INTRAVENOUS (NOT OTHERWISE SPECIFIED)
     Route: 042
     Dates: start: 20091124, end: 20091127
  2. FURESIS [Concomitant]
  3. ISMOX [Concomitant]
  4. KLEXANE /00889602/ [Concomitant]
  5. AMLODIPIN /00972403/ [Concomitant]
  6. KYTRIL [Concomitant]
  7. ALBETOL [Concomitant]
  8. KETORIN [Concomitant]
  9. MINIRIN [Concomitant]
  10. NOVORAPID [Concomitant]
  11. CATAPRESAN /00171101/ [Concomitant]
  12. OXYNORM [Concomitant]
  13. ACTRAPID /00646001/ [Concomitant]

REACTIONS (1)
  - TOXIC EPIDERMAL NECROLYSIS [None]
